FAERS Safety Report 16117737 (Version 3)
Quarter: 2019Q2

REPORT INFORMATION
  Report Type: Spontaneous
  Country: US (occurrence: US)
  Receive Date: 20190326
  Receipt Date: 20190403
  Transmission Date: 20190711
  Serious: Yes (Hospitalization)
  Sender: FDA-Public Use
  Company Number: US-FRESENIUS MEDICAL CARE RENAL THERAPIES GROUP-FMC-1903-000362

PATIENT
  Age: 66 Year
  Weight: 102 kg

DRUGS (9)
  1. DELFLEX WITH DEXTROSE 2.5% LOW MAGNESIUM LOW CALCIUM [Suspect]
     Active Substance: CALCIUM CHLORIDE\DEXTROSE\MAGNESIUM CHLORIDE\SODIUM CHLORIDE\SODIUM LACTATE
     Indication: END STAGE RENAL DISEASE
     Route: 033
     Dates: start: 20180626
  2. VELPHORO [Concomitant]
     Active Substance: FERRIC OXYHYDROXIDE
  3. ASA [Concomitant]
     Active Substance: ASPIRIN
  4. SODIUM BICARBONATE. [Concomitant]
     Active Substance: SODIUM BICARBONATE
  5. INSULIN [Concomitant]
     Active Substance: INSULIN NOS
  6. ATORVASTATIN [Concomitant]
     Active Substance: ATORVASTATIN
  7. DILTIAZEM. [Concomitant]
     Active Substance: DILTIAZEM
  8. CALCITRIOL. [Concomitant]
     Active Substance: CALCITRIOL
  9. VITAMIN D NOS [Concomitant]
     Active Substance: VITAMIN D NOS

REACTIONS (1)
  - Cerebrovascular accident [Unknown]

NARRATIVE: CASE EVENT DATE: 20190322
